FAERS Safety Report 11877507 (Version 2)
Quarter: 2016Q2

REPORT INFORMATION
  Report Type: Spontaneous
  Country: JP (occurrence: JP)
  Receive Date: 20151229
  Receipt Date: 20160401
  Transmission Date: 20160815
  Serious: Yes (Other)
  Sender: FDA-Public Use
  Company Number: JP-ROCHE-1679595

PATIENT
  Age: 68 Year
  Sex: Male

DRUGS (2)
  1. ACTEMRA [Suspect]
     Active Substance: TOCILIZUMAB
     Indication: RHEUMATIC DISORDER
     Dosage: DOSE INTERVAL UNCERTAINTY
     Route: 041
     Dates: start: 201506
  2. LYRICA [Concomitant]
     Active Substance: PREGABALIN
     Dosage: DOSAGE IS UNCERTAIN.
     Route: 048

REACTIONS (2)
  - Gastric cancer [Unknown]
  - Cholangitis [Unknown]

NARRATIVE: CASE EVENT DATE: 20151120
